FAERS Safety Report 7432072-4 (Version None)
Quarter: 2011Q2

REPORT INFORMATION
  Report Type: 
  Country: None (occurrence: None)
  Receive Date: 20110422
  Receipt Date: 20110407
  Transmission Date: 20111010
  Serious: Yes (Life-Threatening, Hospitalization)
  Sender: FDA-Public Use
  Company Number: JP-CELGENEUS-087-21880-11030182

PATIENT
  Sex: Male

DRUGS (22)
  1. REVLIMID [Suspect]
     Indication: MULTIPLE MYELOMA
     Dosage: 25 MILLIGRAM
     Route: 048
     Dates: start: 20100924, end: 20100926
  2. OXINORM [Concomitant]
     Indication: MULTIPLE MYELOMA
     Dosage: 5 MILLIGRAM
     Route: 048
     Dates: start: 20100924, end: 20110205
  3. REVLIMID [Suspect]
     Dosage: 15 MILLIGRAM
     Route: 048
     Dates: start: 20101119, end: 20101210
  4. REVLIMID [Suspect]
     Dosage: 15 MILLIGRAM
     Route: 048
     Dates: start: 20101217, end: 20110107
  5. DECADRON [Suspect]
     Dosage: 21 MILLIGRAM
     Route: 048
     Dates: start: 20110131, end: 20110204
  6. SELBEX [Concomitant]
     Indication: MULTIPLE MYELOMA
     Dosage: 150 MILLIGRAM
     Route: 048
     Dates: start: 20100924, end: 20110205
  7. TEGRETOL [Concomitant]
     Dosage: 100 MILLIGRAM
     Route: 048
     Dates: start: 20100924, end: 20110205
  8. REVLIMID [Suspect]
     Dosage: 10 MILLIGRAM
     Route: 048
     Dates: start: 20101003, end: 20101004
  9. REVLIMID [Suspect]
     Dosage: 15 MILLIGRAM
     Route: 048
     Dates: start: 20101022, end: 20101112
  10. GASTER D [Concomitant]
     Indication: MULTIPLE MYELOMA
     Dosage: 40 MILLIGRAM
     Route: 048
     Dates: start: 20100924, end: 20110205
  11. VOLTAREN [Concomitant]
     Indication: MULTIPLE MYELOMA
     Dosage: 75 MILLIGRAM
     Route: 048
     Dates: start: 20100924, end: 20110205
  12. BUFFERIN [Concomitant]
     Indication: PROPHYLAXIS
     Dosage: 81 MILLIGRAM
     Route: 048
     Dates: start: 20100924, end: 20110205
  13. MAGMITT [Concomitant]
     Indication: MULTIPLE MYELOMA
     Dosage: 500 MILLIGRAM
     Route: 048
     Dates: start: 20100924, end: 20110205
  14. REVLIMID [Suspect]
     Dosage: 15 MILLIGRAM
     Route: 048
     Dates: start: 20101005, end: 20101015
  15. DECADRON [Suspect]
     Dosage: 21 MILLIGRAM
     Route: 048
     Dates: start: 20101206, end: 20101209
  16. DECADRON [Suspect]
     Dosage: 21 MILLIGRAM
     Route: 048
     Dates: start: 20110104, end: 20110106
  17. METHYCOBAL [Concomitant]
     Dosage: 1500 MICROGRAM
     Route: 048
     Dates: start: 20100924, end: 20110205
  18. DECADRON [Suspect]
     Dosage: 21 MILLIGRAM
     Route: 048
     Dates: start: 20101108, end: 20101111
  19. REVLIMID [Suspect]
     Dosage: 5 MILLIGRAM
     Route: 048
     Dates: start: 20101001, end: 20101002
  20. REVLIMID [Suspect]
     Dosage: 15 MILLIGRAM
     Route: 048
     Dates: start: 20110114, end: 20110203
  21. DECADRON [Suspect]
     Indication: MULTIPLE MYELOMA
     Dosage: 21 MILLIGRAM
     Route: 048
     Dates: start: 20101011, end: 20101014
  22. DUROTEP [Concomitant]
     Indication: MULTIPLE MYELOMA
     Dosage: 6.3 MILLIGRAM
     Route: 062
     Dates: start: 20100924, end: 20110205

REACTIONS (5)
  - GASTROINTESTINAL PERFORATION [None]
  - RASH [None]
  - PERITONITIS [None]
  - DIARRHOEA [None]
  - SEPSIS [None]
